FAERS Safety Report 10816086 (Version 1)
Quarter: 2015Q1

REPORT INFORMATION
  Report Type: Report from Study
  Country: US (occurrence: US)
  Receive Date: 20150218
  Receipt Date: 20150218
  Transmission Date: 20150721
  Serious: No
  Sender: FDA-Public Use
  Company Number: US-ABBVIE-14K-163-1285731-00

PATIENT
  Age: 40 Year
  Sex: Female

DRUGS (2)
  1. MELOXICAM. [Concomitant]
     Active Substance: MELOXICAM
     Indication: PRODUCT USED FOR UNKNOWN INDICATION
  2. HUMIRA [Suspect]
     Active Substance: ADALIMUMAB
     Indication: RHEUMATOID ARTHRITIS
     Dates: start: 201408

REACTIONS (5)
  - Drug dose omission [Unknown]
  - Injection site pain [Unknown]
  - Nervousness [Not Recovered/Not Resolved]
  - Wrong technique in drug usage process [Unknown]
  - Injection site pain [Unknown]

NARRATIVE: CASE EVENT DATE: 2014
